FAERS Safety Report 9103758 (Version 1)
Quarter: 2013Q1

REPORT INFORMATION
  Report Type: Spontaneous
  Country: US (occurrence: US)
  Receive Date: 20130219
  Receipt Date: 20130219
  Transmission Date: 20140127
  Serious: Yes (Hospitalization, Other)
  Sender: FDA-Public Use
  Company Number: US-AMGEN-USASP2013010501

PATIENT
  Age: 56 Year
  Sex: Male
  Weight: 124.7 kg

DRUGS (5)
  1. ENBREL [Suspect]
     Indication: PSORIASIS
     Dosage: UNK
     Route: 058
     Dates: start: 201110, end: 201110
  2. HUMIRA [Concomitant]
     Indication: PSORIASIS
     Dosage: 40 MG, Q2WK
     Dates: start: 201106, end: 201112
  3. HUMIRA [Concomitant]
     Indication: PSORIATIC ARTHROPATHY
  4. LISINOPRIL [Concomitant]
     Indication: HYPERTENSION
     Dosage: 10 MG, 1 IN 1
  5. DIAZEPAM [Concomitant]
     Indication: AFRICAN TRYPANOSOMIASIS
     Dosage: 1 IN 1, AT BEDTIME

REACTIONS (12)
  - Sinus disorder [Recovered/Resolved]
  - Sinus congestion [Recovered/Resolved]
  - Pneumonia [Recovered/Resolved]
  - Sinusitis [Recovered/Resolved]
  - Bronchitis [Recovered/Resolved]
  - Scab [Unknown]
  - Skin haemorrhage [Unknown]
  - Fatigue [Recovered/Resolved]
  - Pyrexia [Recovered/Resolved]
  - Sinus headache [Recovered/Resolved]
  - Oxygen saturation decreased [Recovered/Resolved]
  - Psoriasis [Unknown]
